FAERS Safety Report 8111391-2 (Version None)
Quarter: 2012Q1

REPORT INFORMATION
  Report Type: 
  Country: None (occurrence: None)
  Receive Date: 20120203
  Receipt Date: 20111101
  Transmission Date: 20120608
  Serious: No
  Sender: FDA-Public Use
  Company Number: US-GLAXOSMITHKLINE-A0951788A

PATIENT
  Age: 22 Year
  Sex: Female

DRUGS (4)
  1. EFFEXOR [Concomitant]
     Indication: BIPOLAR II DISORDER
     Dosage: 37.5MG IN THE MORNING
     Route: 048
  2. LAMOTRIGINE [Suspect]
     Indication: BIPOLAR II DISORDER
     Dosage: 150MG PER DAY
     Route: 048
     Dates: end: 20111028
  3. SUBOXONE [Concomitant]
     Indication: DRUG DEPENDENCE
     Dosage: 4MG TWICE PER DAY
     Route: 060
     Dates: start: 20110818
  4. KLONOPIN [Concomitant]
     Indication: ANXIETY
     Dosage: 1MG TWICE PER DAY
     Route: 048

REACTIONS (2)
  - RASH [None]
  - RASH PUSTULAR [None]
